FAERS Safety Report 6903820-4 (Version None)
Quarter: 2010Q3

REPORT INFORMATION
  Report Type: 
  Country: None (occurrence: None)
  Receive Date: 20100804
  Receipt Date: 20090105
  Transmission Date: 20110219
  Serious: No
  Sender: FDA-Public Use
  Company Number: US-PFIZER INC-2009151998

PATIENT
  Sex: Female

DRUGS (2)
  1. LYRICA [Suspect]
     Indication: BREAST CANCER
  2. ANTINEOPLASTIC AGENTS [Suspect]
     Indication: BREAST CANCER

REACTIONS (1)
  - ADVERSE DRUG REACTION [None]
